FAERS Safety Report 18568878 (Version 1)
Quarter: 2020Q4

REPORT INFORMATION
  Report Type: Spontaneous
  Country: US (occurrence: US)
  Receive Date: 20201201
  Receipt Date: 20201201
  Transmission Date: 20210114
  Serious: No
  Sender: FDA-Public Use
  Company Number: None

PATIENT
  Sex: Male

DRUGS (1)
  1. TRAVOPROST. [Suspect]
     Active Substance: TRAVOPROST
     Route: 047

REACTIONS (7)
  - Drug ineffective [None]
  - Ocular discomfort [None]
  - Intraocular pressure increased [None]
  - Eyelash changes [None]
  - Growth of eyelashes [None]
  - Lacrimation increased [None]
  - Ocular hyperaemia [None]
